FAERS Safety Report 7201865-0 (Version None)
Quarter: 2010Q4

REPORT INFORMATION
  Report Type: 
  Country: None (occurrence: None)
  Receive Date: 20101229
  Receipt Date: 20101112
  Transmission Date: 20110411
  Serious: No
  Sender: FDA-Public Use
  Company Number: US-BAYER-2010-004948

PATIENT
  Sex: Male
  Weight: 98 kg

DRUGS (3)
  1. ALEVE [Suspect]
  2. LOVASTATIN [Concomitant]
  3. LISINOPRIL [Concomitant]

REACTIONS (1)
  - NAUSEA [None]
